FAERS Safety Report 19228302 (Version 1)
Quarter: 2021Q2

REPORT INFORMATION
  Report Type: Spontaneous
  Country: DE (occurrence: DE)
  Receive Date: 20210507
  Receipt Date: 20210507
  Transmission Date: 20210717
  Serious: Yes (Other)
  Sender: FDA-Public Use
  Company Number: DE-SUN PHARMACEUTICAL INDUSTRIES LTD-2021RR-294955

PATIENT
  Age: 53 Year
  Sex: Female
  Weight: 68 kg

DRUGS (1)
  1. VALSARTAN BASICS 80 MG FILMTABLETTEN [Suspect]
     Active Substance: VALSARTAN
     Indication: PRODUCT SUBSTITUTION
     Dosage: 80 MILLIGRAM, BID, 1 TABLET (80 MG) EACH MORNING AND EVENING
     Route: 048
     Dates: start: 20210404, end: 20210412

REACTIONS (6)
  - Micturition urgency [Recovering/Resolving]
  - Nausea [Recovering/Resolving]
  - Insomnia [Recovering/Resolving]
  - Heart rate increased [Recovering/Resolving]
  - Diarrhoea [Recovering/Resolving]
  - Blood pressure increased [Recovering/Resolving]

NARRATIVE: CASE EVENT DATE: 20210407
